FAERS Safety Report 4947334-X (Version None)
Quarter: 2006Q1

REPORT INFORMATION
  Report Type: 
  Country: None (occurrence: None)
  Receive Date: 20060317
  Receipt Date: 20060223
  Transmission Date: 20060701
  Serious: Yes (Hospitalization)
  Sender: FDA-Public Use
  Company Number: FR-ABBOTT-06P-056-0326074-00

PATIENT
  Age: 69 Year
  Sex: Male
  Weight: 80 kg

DRUGS (14)
  1. SEVORANE [Suspect]
     Indication: ANAESTHESIA
     Route: 055
     Dates: start: 20060126, end: 20060126
  2. KETOPROFEN [Suspect]
     Indication: DRUG USE FOR UNKNOWN INDICATION
     Dates: start: 20060126, end: 20060126
  3. CEFUROXIME AXETIL [Suspect]
     Indication: DRUG USE FOR UNKNOWN INDICATION
     Dates: start: 20060126, end: 20060126
  4. SUFENTANIL CITRATE [Suspect]
     Indication: DRUG USE FOR UNKNOWN INDICATION
     Dates: start: 20060126, end: 20060126
  5. ATRACURIUM BESYLATE [Suspect]
     Indication: DRUG USE FOR UNKNOWN INDICATION
     Dates: start: 20060126, end: 20060126
  6. PROPOFOL [Suspect]
     Indication: ANAESTHESIA
     Dates: start: 20060126, end: 20060126
  7. METOCLOPRAMIDE [Concomitant]
     Indication: DRUG USE FOR UNKNOWN INDICATION
     Dates: start: 20060126, end: 20060126
  8. PHLOROGLUCINOL [Concomitant]
     Indication: DRUG USE FOR UNKNOWN INDICATION
     Dates: start: 20060126, end: 20060126
  9. PARACETAMOL [Concomitant]
     Indication: DRUG USE FOR UNKNOWN INDICATION
     Dates: start: 20060126, end: 20060126
  10. NEFOPAM HYDROCHLORIDE [Concomitant]
     Indication: DRUG USE FOR UNKNOWN INDICATION
     Dates: start: 20060126, end: 20060126
  11. DOXAZOSIN MESYLATE [Concomitant]
     Indication: DRUG USE FOR UNKNOWN INDICATION
  12. PIASCLEDINE [Concomitant]
     Indication: DRUG USE FOR UNKNOWN INDICATION
  13. ACTIVATED CARBON [Concomitant]
     Indication: DRUG USE FOR UNKNOWN INDICATION
  14. PIRACETAM [Concomitant]
     Indication: DRUG USE FOR UNKNOWN INDICATION

REACTIONS (9)
  - ANAEMIA [None]
  - ASTHENIA [None]
  - MUCOSAL DISCOLOURATION [None]
  - OEDEMA PERIPHERAL [None]
  - PALLOR [None]
  - PRURITUS [None]
  - RASH [None]
  - URTICARIA [None]
  - WEIGHT DECREASED [None]
